FAERS Safety Report 20297415 (Version 2)
Quarter: 2022Q1

REPORT INFORMATION
  Report Type: Spontaneous
  Country: CA (occurrence: CA)
  Receive Date: 20220105
  Receipt Date: 20220211
  Transmission Date: 20220423
  Serious: Yes (Other)
  Sender: FDA-Public Use
  Company Number: CA-CELLTRION INC.-2021CA014162

PATIENT

DRUGS (6)
  1. INFLECTRA [Suspect]
     Active Substance: INFLIXIMAB-DYYB
     Indication: Crohn^s disease
     Dosage: 400 MG, Q 0,2 AND 6 WEEKS, THEN EVERY 8 WEEKS.
     Route: 042
     Dates: start: 20210629
  2. INFLECTRA [Suspect]
     Active Substance: INFLIXIMAB-DYYB
     Dosage: 400 MG, Q 0,2 AND 6 WEEKS, THEN EVERY 8 WEEKS.
     Route: 042
     Dates: start: 20210715
  3. INFLECTRA [Suspect]
     Active Substance: INFLIXIMAB-DYYB
     Dosage: 400 MG, Q 0,2 AND 6 WEEKS, THEN EVERY 8 WEEKS.
     Route: 042
     Dates: start: 20210812
  4. INFLECTRA [Suspect]
     Active Substance: INFLIXIMAB-DYYB
     Dosage: 400 MG, Q 0,2 AND 6 WEEKS, THEN EVERY 8 WEEKS.
     Route: 042
     Dates: start: 20211007
  5. INFLECTRA [Suspect]
     Active Substance: INFLIXIMAB-DYYB
     Dosage: 400 MG, Q 0,2 AND 6 WEEKS, THEN EVERY 8 WEEKS.
     Route: 042
     Dates: start: 20211202
  6. METHOTREXATE [Concomitant]
     Active Substance: METHOTREXATE
     Dosage: 25 MG, WEEKLY
     Dates: start: 202106

REACTIONS (11)
  - Loss of personal independence in daily activities [Recovering/Resolving]
  - Fatigue [Recovered/Resolved]
  - Blood pressure fluctuation [Recovered/Resolved]
  - Heart rate decreased [Recovered/Resolved]
  - Fistula [Not Recovered/Not Resolved]
  - Fistula discharge [Not Recovered/Not Resolved]
  - Frequent bowel movements [Recovering/Resolving]
  - C-reactive protein decreased [Recovering/Resolving]
  - Pouchitis [Unknown]
  - Off label use [Unknown]
  - Product use issue [Unknown]

NARRATIVE: CASE EVENT DATE: 20210101
